FAERS Safety Report 18649954 (Version 2)
Quarter: 2020Q4

REPORT INFORMATION
  Report Type: Spontaneous
  Country: US (occurrence: US)
  Receive Date: 20201222
  Receipt Date: 20201224
  Transmission Date: 20210114
  Serious: Yes (Hospitalization)
  Sender: FDA-Public Use
  Company Number: US-TEVA-2020-US-1860561

PATIENT
  Sex: Male

DRUGS (1)
  1. SILDENAFIL TEVA [Suspect]
     Active Substance: SILDENAFIL
     Indication: ERECTILE DYSFUNCTION
     Route: 065
     Dates: start: 20201213

REACTIONS (4)
  - Feeling abnormal [Unknown]
  - Product quality issue [Unknown]
  - Drug hypersensitivity [Unknown]
  - Amnesia [Recovered/Resolved]

NARRATIVE: CASE EVENT DATE: 202012
